FAERS Safety Report 10029105 (Version 3)
Quarter: 2014Q2

REPORT INFORMATION
  Report Type: Spontaneous
  Country: US (occurrence: US)
  Receive Date: 20140321
  Receipt Date: 20140430
  Transmission Date: 20141212
  Serious: No
  Sender: FDA-Public Use
  Company Number: US-PFIZER INC-2014079830

PATIENT
  Age: 34 Year
  Sex: Female

DRUGS (9)
  1. PRISTIQ [Suspect]
     Indication: AFFECTIVE DISORDER
     Dosage: 50 MG, 1X/DAY
     Route: 048
     Dates: start: 20140307, end: 20140313
  2. PRISTIQ [Suspect]
     Indication: DEPRESSION
  3. ROZEREM [Concomitant]
     Dosage: 8 MG,  1X/DAY, HS
  4. DIAZEPAM [Concomitant]
     Dosage: 10 MG, BID-TID
  5. LAMICTAL [Concomitant]
     Dosage: 150 MG, 1X/DAY
  6. ADDERALL [Concomitant]
     Dosage: 10MG EVERY MORNING AND MIDDAY AND 5MG EVERY  AFTERNOON
  7. BENADRYL [Concomitant]
     Dosage: 50 MG, 1X DAY, HS
  8. VICODIN [Concomitant]
     Dosage: 1 DF, 1X/DAY
  9. ATROVENT [Concomitant]
     Dosage: UNK
     Route: 055

REACTIONS (5)
  - Dyspnoea [Recovered/Resolved]
  - Chest discomfort [Recovered/Resolved]
  - Cough [Recovered/Resolved]
  - Wheezing [Recovered/Resolved]
  - Bronchitis [Unknown]
